FAERS Safety Report 14700441 (Version 1)
Quarter: 2018Q1

REPORT INFORMATION
  Report Type: Other
  Country: TW (occurrence: TW)
  Receive Date: 20180330
  Receipt Date: 20180330
  Transmission Date: 20180509
  Serious: Yes (Death, Life-Threatening, Hospitalization, Other)
  Sender: FDA-Public Use
  Company Number: TW-NOSTRUM LABORATORIES, INC.-2044813

PATIENT
  Age: 33 Year
  Sex: Male

DRUGS (1)
  1. DAPSONE. [Suspect]
     Active Substance: DAPSONE
     Indication: URTICARIA CHRONIC
     Route: 048

REACTIONS (4)
  - Urticaria chronic [Fatal]
  - Eosinophilic myocarditis [Fatal]
  - Drug reaction with eosinophilia and systemic symptoms [Fatal]
  - Myocardial infarction [Fatal]
